FAERS Safety Report 16777348 (Version 1)
Quarter: 2019Q4

REPORT INFORMATION
  Report Type: Spontaneous
  Country: US (occurrence: US)
  Receive Date: 20190905
  Receipt Date: 20190905
  Transmission Date: 20200122
  Serious: No
  Sender: FDA-Public Use
  Company Number: None

PATIENT
  Sex: Male
  Weight: 87.75 kg

DRUGS (4)
  1. MOTRIN [Concomitant]
     Active Substance: IBUPROFEN
  2. ALLEGRA [Concomitant]
     Active Substance: FEXOFENADINE HYDROCHLORIDE
  3. RESTASIS [Suspect]
     Active Substance: CYCLOSPORINE
     Indication: DRY EYE
     Route: 047
  4. NAPROXIN [Concomitant]
     Active Substance: NAPROXEN

REACTIONS (8)
  - Ocular hyperaemia [None]
  - Burning sensation [None]
  - Lacrimation increased [None]
  - Vision blurred [None]
  - Sensation of foreign body [None]
  - Pruritus [None]
  - Corneal opacity [None]
  - Pain [None]
